FAERS Safety Report 4900955-2 (Version None)
Quarter: 2006Q1

REPORT INFORMATION
  Report Type: 
  Country: None (occurrence: None)
  Receive Date: 20060203
  Receipt Date: 20050706
  Transmission Date: 20060701
  Serious: Yes (Hospitalization, Disabling, Other)
  Sender: FDA-Public Use
  Company Number: US-MERCK-0507USA01106

PATIENT
  Age: 61 Year
  Sex: Male
  Weight: 97 kg

DRUGS (3)
  1. VIOXX [Suspect]
     Indication: MUSCLE SPASMS
     Route: 048
     Dates: start: 20020708, end: 20040911
  2. VIOXX [Suspect]
     Indication: BACK PAIN
     Route: 048
     Dates: start: 20020708, end: 20040911
  3. RHINOCORT [Concomitant]
     Route: 065

REACTIONS (37)
  - BALANCE DISORDER [None]
  - BENIGN PROSTATIC HYPERPLASIA [None]
  - BLOOD CHOLESTEROL INCREASED [None]
  - COAGULATION FACTOR VIII LEVEL INCREASED [None]
  - CYST [None]
  - EMBOLIC STROKE [None]
  - EMBOLISM [None]
  - EMOTIONAL DISTRESS [None]
  - FACIAL PALSY [None]
  - GAIT DISTURBANCE [None]
  - GOUTY ARTHRITIS [None]
  - HEMIPARESIS [None]
  - HIGH DENSITY LIPOPROTEIN DECREASED [None]
  - HYPERCOAGULATION [None]
  - HYPERHOMOCYSTEINAEMIA [None]
  - HYPERLIPIDAEMIA [None]
  - HYPERTENSION [None]
  - LACERATION [None]
  - MOTOR DYSFUNCTION [None]
  - NERVOUS SYSTEM DISORDER [None]
  - NOCTURIA [None]
  - POLLAKIURIA [None]
  - POLYURIA [None]
  - PROTEIN C INCREASED [None]
  - PROTEIN S INCREASED [None]
  - RENAL DISORDER [None]
  - RENAL FAILURE [None]
  - RENAL FAILURE CHRONIC [None]
  - RENAL HYPERTROPHY [None]
  - RENAL INFARCT [None]
  - SCAR [None]
  - SKIN LACERATION [None]
  - SPLENOMEGALY [None]
  - THROMBOCYTOPENIA [None]
  - TOOTH EXTRACTION [None]
  - TRANSIENT ISCHAEMIC ATTACK [None]
  - WISDOM TEETH REMOVAL [None]
